FAERS Safety Report 16763370 (Version 1)
Quarter: 2019Q3

REPORT INFORMATION
  Report Type: Spontaneous
  Country: IT (occurrence: IT)
  Receive Date: 20190902
  Receipt Date: 20190902
  Transmission Date: 20191005
  Serious: Yes (Death, Other)
  Sender: FDA-Public Use
  Company Number: IT-JNJFOC-20190831810

PATIENT
  Age: 74 Year
  Sex: Male
  Weight: 90 kg

DRUGS (1)
  1. IMBRUVICA [Suspect]
     Active Substance: IBRUTINIB
     Indication: CHRONIC LYMPHOCYTIC LEUKAEMIA
     Route: 048
     Dates: start: 20190722, end: 20190802

REACTIONS (5)
  - Anaemia [Fatal]
  - Neutropenia [Fatal]
  - Acute kidney injury [Fatal]
  - Tumour lysis syndrome [Unknown]
  - Gastric haemorrhage [Fatal]

NARRATIVE: CASE EVENT DATE: 20190802
